FAERS Safety Report 8978194 (Version 1)
Quarter: 2012Q4

REPORT INFORMATION
  Report Type: 
  Country: IT (occurrence: IT)
  Receive Date: 20121221
  Receipt Date: 20121221
  Transmission Date: 20130627
  Serious: Yes (Other)
  Sender: FDA-Public Use
  Company Number: IT-PFIZER INC-2012321751

PATIENT
  Age: 37 Year
  Sex: Female
  Weight: 68 kg

DRUGS (4)
  1. IRINOTECAN HCL [Suspect]
     Indication: RECTAL CANCER
     Dosage: 230 mg, cyclic
     Route: 042
     Dates: start: 20120720
  2. ERBITUX [Suspect]
     Indication: RECTAL CANCER
     Dosage: 635 mg, cyclic
     Route: 042
     Dates: start: 20120720
  3. EUTIROX [Concomitant]
  4. CALCIUM LEVOFOLINATE [Concomitant]
     Dosage: UNK
     Dates: start: 20120720, end: 20120912

REACTIONS (1)
  - Infusion related reaction [Recovered/Resolved]
